FAERS Safety Report 5767490-3 (Version None)
Quarter: 2008Q2

REPORT INFORMATION
  Report Type: 
  Country: None (occurrence: None)
  Receive Date: 20080612
  Receipt Date: 20080604
  Transmission Date: 20081010
  Serious: Yes (Hospitalization)
  Sender: FDA-Public Use
  Company Number: US-ELI_LILLY_AND_COMPANY-US200806000920

PATIENT
  Sex: Female

DRUGS (2)
  1. FORTEO [Suspect]
     Indication: OSTEOPOROSIS
     Dates: start: 20080101, end: 20080101
  2. CALCIUM [Concomitant]
     Indication: OSTEOPOROSIS

REACTIONS (5)
  - ANAESTHETIC COMPLICATION [None]
  - INFECTION [None]
  - MEMORY IMPAIRMENT [None]
  - POST PROCEDURAL COMPLICATION [None]
  - TRANSFUSION [None]
